FAERS Safety Report 14180919 (Version 1)
Quarter: 2017Q4

REPORT INFORMATION
  Report Type: Spontaneous
  Country: US (occurrence: US)
  Receive Date: 20171108
  Receipt Date: 20171108
  Transmission Date: 20180321
  Serious: Yes (Hospitalization, Other)
  Sender: FDA-Public Use
  Company Number: None

PATIENT
  Age: 26 Year
  Sex: Male

DRUGS (1)
  1. GREEN MALAY KRATOM [Suspect]
     Active Substance: MITRAGYNINE\HERBALS
     Indication: PRODUCT USED FOR UNKNOWN INDICATION
     Route: 048

REACTIONS (3)
  - Hepatic enzyme increased [None]
  - Lethargy [None]
  - Jaundice [None]

NARRATIVE: CASE EVENT DATE: 20171107
